FAERS Safety Report 7323082-6 (Version None)
Quarter: 2011Q1

REPORT INFORMATION
  Report Type: 
  Country: None (occurrence: None)
  Receive Date: 20110215
  Receipt Date: 20110207
  Transmission Date: 20110831
  Serious: Yes (Death)
  Sender: FDA-Public Use
  Company Number: DSA_44472_2010

PATIENT
  Sex: Male
  Weight: 91.6266 kg

DRUGS (8)
  1. NYSTATIN [Concomitant]
  2. DOMPERIDONE [Concomitant]
  3. HYDROMORPHONE HCL [Concomitant]
  4. FLORASTOR [Concomitant]
  5. MIRAPEX [Concomitant]
  6. KLONOPIN [Concomitant]
  7. XENAZINE [Suspect]
     Indication: TARDIVE DYSKINESIA
     Dosage: (25 MG TID ORAL), (DF)
     Route: 048
     Dates: start: 20100101, end: 20100101
  8. XENAZINE [Suspect]
     Indication: TARDIVE DYSKINESIA
     Dosage: (25 MG TID ORAL), (DF)
     Route: 048
     Dates: start: 20100101

REACTIONS (1)
  - DEATH [None]
